FAERS Safety Report 6229777-X (Version None)
Quarter: 2009Q2

REPORT INFORMATION
  Report Type: 
  Country: None (occurrence: None)
  Receive Date: 20090615
  Receipt Date: 20090608
  Transmission Date: 20091009
  Serious: Yes (Other)
  Sender: FDA-Public Use
  Company Number: PHEH2009US05902

PATIENT
  Sex: Female
  Weight: 78.912 kg

DRUGS (10)
  1. RECLAST [Suspect]
     Indication: OSTEOPOROSIS
     Dosage: 5 MG, YEARLY
     Route: 042
     Dates: start: 20090513, end: 20090513
  2. CIPRO [Concomitant]
     Dosage: 500 MG, BID (ANTIBIOTIC)
     Route: 048
     Dates: start: 20090518, end: 20090524
  3. ARIMIDEX [Concomitant]
     Indication: BREAST CANCER
     Dosage: 1 MG, QD
     Route: 048
     Dates: start: 20051005
  4. LEVOXYL [Concomitant]
     Indication: THYROID DISORDER
     Dosage: 50 MCG, QD
     Route: 048
     Dates: start: 20060329
  5. CYMBALTA [Concomitant]
     Indication: DEPRESSION
     Dosage: 90 MG, BID
     Route: 048
     Dates: start: 20081015
  6. TRAMADOL HCL [Concomitant]
     Dosage: 50 MG, Q4H PRN
     Dates: start: 20060329
  7. NEURONTIN [Concomitant]
     Dosage: 800 MG, QD
     Dates: start: 20060329
  8. ULTRASE MT [Concomitant]
     Dosage: 18 UNK, QD
     Dates: start: 20060329
  9. CALCIUM WITH VITAMIN D [Concomitant]
     Dosage: 500 UNK, QD
     Dates: start: 20081015
  10. ZANAFLEX [Concomitant]
     Dosage: 16 MG, QD PRN
     Dates: start: 20060329

REACTIONS (5)
  - CHEST DISCOMFORT [None]
  - COUGH [None]
  - DYSPNOEA [None]
  - HYPERTENSION [None]
  - OXYGEN SATURATION DECREASED [None]
